FAERS Safety Report 6157614-0 (Version None)
Quarter: 2009Q2

REPORT INFORMATION
  Report Type: 
  Country: None (occurrence: None)
  Receive Date: 20090416
  Receipt Date: 20090416
  Transmission Date: 20091009
  Serious: Yes (Other)
  Sender: FDA-Public Use
  Company Number: GB-ABBOTT-09P-167-0568058-00

PATIENT
  Sex: Female

DRUGS (2)
  1. HUMIRA [Suspect]
     Indication: DRUG USE FOR UNKNOWN INDICATION
     Dates: start: 20081201
  2. METHOTREXATE [Concomitant]
     Indication: DRUG USE FOR UNKNOWN INDICATION

REACTIONS (8)
  - ARTHRALGIA [None]
  - DRUG DOSE OMISSION [None]
  - EYE OEDEMA [None]
  - EYE PAIN [None]
  - ILL-DEFINED DISORDER [None]
  - OROPHARYNGEAL BLISTERING [None]
  - PALPITATIONS [None]
  - RASH [None]
